FAERS Safety Report 5871235-6 (Version None)
Quarter: 2008Q3

REPORT INFORMATION
  Report Type: 
  Country: None (occurrence: None)
  Receive Date: 20080905
  Receipt Date: 20080826
  Transmission Date: 20090109
  Serious: Yes (Hospitalization)
  Sender: FDA-Public Use
  Company Number: GB-RANBAXY-2008RR-17137

PATIENT

DRUGS (4)
  1. ISOTRETINOIN [Suspect]
     Indication: ACNE
     Dosage: 0.3 MG/KG, QD
  2. ISOTRETINOIN [Suspect]
     Dosage: 0.6 MG/KG, QD
  3. TRIMETHOPRIM [Concomitant]
     Indication: ACNE
     Dosage: 300 MG, BID
  4. DAPSONE [Concomitant]
     Indication: ACNE

REACTIONS (2)
  - OSTEITIS [None]
  - SAPHO SYNDROME [None]
